FAERS Safety Report 7444691-X (Version None)
Quarter: 2011Q2

REPORT INFORMATION
  Report Type: 
  Country: None (occurrence: None)
  Receive Date: 20110420
  Receipt Date: 20110405
  Transmission Date: 20111010
  Serious: Yes (Disabling)
  Sender: FDA-Public Use
  Company Number: 2010AL001780

PATIENT
  Age: 55 Year
  Sex: Female
  Weight: 99.3377 kg

DRUGS (37)
  1. PREVPAC [Concomitant]
  2. LIDOCAINE [Concomitant]
  3. NASONEX [Concomitant]
  4. DURATUSS [Concomitant]
  5. BEXTRA [Concomitant]
  6. NSAIDS [Concomitant]
  7. KENALOG [Concomitant]
  8. AMOXICILLIN [Concomitant]
  9. RANITIDINE [Concomitant]
  10. CLINORIL [Concomitant]
  11. VIOXX [Concomitant]
  12. TRIAMCINOLONE [Concomitant]
  13. ASLPRAZOLAM [Concomitant]
  14. NASONEX [Concomitant]
  15. METOCLOPRAMIDE [Suspect]
     Indication: GASTROINTESTINAL DISORDER
     Dosage: 10 MG;QID;PO
     Route: 048
     Dates: start: 20040214, end: 20040304
  16. LAMISIL [Concomitant]
  17. FLUOXETINE [Concomitant]
  18. KEFLEX [Concomitant]
  19. PENLAC [Concomitant]
  20. CLARINEX [Concomitant]
  21. DARVOCET [Concomitant]
  22. MARCAINE [Concomitant]
  23. PRILOSEC [Concomitant]
  24. ASTELIN [Concomitant]
  25. CYCLOBENZAPRINE [Concomitant]
  26. PROMETHAZINE [Concomitant]
  27. PROTONIX [Concomitant]
  28. PHENERGAN HCL [Concomitant]
  29. CLARITIN [Concomitant]
  30. CELESTONE [Concomitant]
  31. BACTRIM [Concomitant]
  32. INDOMETHACIN [Concomitant]
  33. VICODIN [Concomitant]
  34. METOCLOPRAMIDE [Suspect]
     Dosage: 5 MG; PO
     Route: 048
     Dates: start: 20030813, end: 20031021
  35. ALAVERT [Concomitant]
  36. FLEXERIL [Concomitant]
  37. LORTAB [Concomitant]

REACTIONS (76)
  - MENTAL DISORDER [None]
  - EXTRAPYRAMIDAL DISORDER [None]
  - DEPRESSION [None]
  - BACK PAIN [None]
  - BLOOD CHOLESTEROL INCREASED [None]
  - LOW DENSITY LIPOPROTEIN INCREASED [None]
  - HEPATIC CYST [None]
  - FAECES DISCOLOURED [None]
  - BRONCHITIS [None]
  - NEPHROLITHIASIS [None]
  - LIPASE DECREASED [None]
  - BACTERIURIA [None]
  - HEADACHE [None]
  - VOMITING [None]
  - SCOLIOSIS [None]
  - FLATULENCE [None]
  - PARAESTHESIA [None]
  - SPLENOMEGALY [None]
  - CONSTIPATION [None]
  - BLOOD UREA INCREASED [None]
  - MUSCLE STRAIN [None]
  - GASTRIC MUCOSA ERYTHEMA [None]
  - QUALITY OF LIFE DECREASED [None]
  - NAUSEA [None]
  - TOXICITY TO VARIOUS AGENTS [None]
  - FRUSTRATION [None]
  - GASTRITIS [None]
  - DYSGRAPHIA [None]
  - INSOMNIA [None]
  - OSTEOPENIA [None]
  - URINARY TRACT INFECTION [None]
  - CEREBELLAR SYNDROME [None]
  - DEFORMITY [None]
  - ECONOMIC PROBLEM [None]
  - EMOTIONAL DISTRESS [None]
  - GAIT DISTURBANCE [None]
  - EAR PAIN [None]
  - MALAISE [None]
  - ABDOMINAL DISCOMFORT [None]
  - OROPHARYNGEAL PAIN [None]
  - HAEMANGIOMA [None]
  - URINARY SEDIMENT PRESENT [None]
  - SPEECH DISORDER [None]
  - TENDON RUPTURE [None]
  - MOTOR DYSFUNCTION [None]
  - PAIN [None]
  - MUSCLE TWITCHING [None]
  - BLOOD ALKALINE PHOSPHATASE INCREASED [None]
  - BLOOD TRIGLYCERIDES INCREASED [None]
  - DYSARTHRIA [None]
  - URINE LEUKOCYTE ESTERASE POSITIVE [None]
  - SINUSITIS [None]
  - NERVOUS SYSTEM DISORDER [None]
  - PYREXIA [None]
  - PLANTAR FASCIITIS [None]
  - UNEVALUABLE EVENT [None]
  - DYSTONIA [None]
  - ANXIETY [None]
  - HELICOBACTER TEST POSITIVE [None]
  - COUGH [None]
  - BRADYKINESIA [None]
  - FLAT AFFECT [None]
  - EPICONDYLITIS [None]
  - MUSCLE SPASMS [None]
  - RENAL FAILURE CHRONIC [None]
  - BLOOD URINE PRESENT [None]
  - PARKINSONISM [None]
  - TARDIVE DYSKINESIA [None]
  - DYSPEPSIA [None]
  - DEAFNESS [None]
  - ANGER [None]
  - IMPAIRED WORK ABILITY [None]
  - TENDONITIS [None]
  - ONYCHOMYCOSIS [None]
  - EXOSTOSIS [None]
  - TENDON DISORDER [None]
